FAERS Safety Report 8573138 (Version 6)
Quarter: 2014Q2

REPORT INFORMATION
  Report Type: Report from Study
  Country: PH (occurrence: PH)
  Receive Date: 20120522
  Receipt Date: 20140521
  Transmission Date: 20141212
  Serious: Yes (Death, Hospitalization)
  Sender: FDA-Public Use
  Company Number: PHHO2012PH007174

PATIENT
  Age: 52 Year
  Sex: Male
  Weight: 73 kg

DRUGS (20)
  1. BLINDED ENALAPRIL [Suspect]
     Indication: CARDIAC FAILURE CHRONIC
     Dosage: CODE NOT BROKEN
     Route: 048
     Dates: start: 20120104, end: 20120502
  2. BLINDED LCZ696 [Suspect]
     Indication: CARDIAC FAILURE CHRONIC
     Dosage: CODE NOT BROKEN
     Route: 048
     Dates: start: 20120104, end: 20120502
  3. BLINDED NO TREATMENT RECEIVED [Suspect]
     Indication: CARDIAC FAILURE CHRONIC
     Dosage: CODE NOT BROKEN
     Route: 048
     Dates: start: 20120104, end: 20120502
  4. BLINDED ENALAPRIL [Suspect]
     Dosage: CODE NOT BROKEN
     Route: 048
     Dates: start: 20120507
  5. BLINDED LCZ696 [Suspect]
     Dosage: CODE NOT BROKEN
     Route: 048
     Dates: start: 20120507
  6. BLINDED NO TREATMENT RECEIVED [Suspect]
     Dosage: CODE NOT BROKEN
     Route: 048
     Dates: start: 20120507
  7. BLINDED ENALAPRIL [Suspect]
     Dosage: CODE NOT BROKEN
     Route: 048
     Dates: start: 20120510
  8. BLINDED LCZ696 [Suspect]
     Dosage: CODE NOT BROKEN
     Route: 048
     Dates: start: 20120510
  9. BLINDED NO TREATMENT RECEIVED [Suspect]
     Dosage: CODE NOT BROKEN
     Route: 048
     Dates: start: 20120510
  10. BLINDED ENALAPRIL [Suspect]
     Dosage: CODE NOT BROKEN
     Route: 048
     Dates: start: 20120530, end: 20130214
  11. BLINDED LCZ696 [Suspect]
     Dosage: CODE NOT BROKEN
     Route: 048
     Dates: start: 20120530, end: 20130214
  12. BLINDED NO TREATMENT RECEIVED [Suspect]
     Dosage: CODE NOT BROKEN
     Route: 048
     Dates: start: 20120530, end: 20130214
  13. BLINDED ENALAPRIL [Suspect]
     Dosage: CODE NOT BROKEN
     Route: 048
     Dates: start: 20130306, end: 20130406
  14. BLINDED LCZ696 [Suspect]
     Dosage: CODE NOT BROKEN
     Route: 048
     Dates: start: 20130306, end: 20130406
  15. BLINDED NO TREATMENT RECEIVED [Suspect]
     Dosage: CODE NOT BROKEN
     Route: 048
     Dates: start: 20130306, end: 20130406
  16. BLINDED ENALAPRIL [Suspect]
     Dosage: CODE NOT BROKEN
     Dates: start: 20130904, end: 20131003
  17. BLINDED LCZ696 [Suspect]
     Dosage: CODE NOT BROKEN
     Dates: start: 20130904, end: 20131003
  18. BLINDED NO TREATMENT RECEIVED [Suspect]
     Dosage: CODE NOT BROKEN
     Dates: start: 20130904, end: 20131003
  19. ACETYLSALICYLIC ACID [Concomitant]
     Indication: DRUG THERAPY
     Dosage: UNK
  20. KALIUM DURULES [Concomitant]
     Indication: HYPOKALAEMIA

REACTIONS (7)
  - Congestive cardiomyopathy [Fatal]
  - Cerebral infarction [Fatal]
  - Atrial fibrillation [Fatal]
  - Renal failure acute [Fatal]
  - Acute prerenal failure [Recovered/Resolved]
  - Cardiac failure acute [Recovered/Resolved]
  - Pneumonia [Recovered/Resolved]
